FAERS Safety Report 4356364-0 (Version None)
Quarter: 2004Q2

REPORT INFORMATION
  Report Type: 
  Country: None (occurrence: None)
  Receive Date: 20040506
  Receipt Date: 20040426
  Transmission Date: 20050107
  Serious: Yes (Hospitalization)
  Sender: FDA-Public Use
  Company Number: US-SHR-03-018451

PATIENT
  Age: 82 Year
  Sex: Female
  Weight: 60 kg

DRUGS (10)
  1. FLUDARA [Suspect]
     Indication: CHRONIC LYMPHOCYTIC LEUKAEMIA
     Dosage: 25 MG/M2 QD X 5 DAYS, INTRAVENOUS
     Route: 042
     Dates: start: 20031117, end: 20031121
  2. LEUKERAN [Concomitant]
  3. NEURONTIN [Concomitant]
  4. NORVASC [Concomitant]
  5. LIPITOR (ATORAVSTATIN) [Concomitant]
  6. ATIVAN [Concomitant]
  7. PREVACID [Concomitant]
  8. MVI (VITAMIN NOS) [Concomitant]
  9. FOLIC ACID [Concomitant]
  10. IRON (IRON) [Concomitant]

REACTIONS (15)
  - ANTI-PLATELET ANTIBODY POSITIVE [None]
  - ANXIETY [None]
  - AUTOIMMUNE THROMBOCYTOPENIA [None]
  - DEHYDRATION [None]
  - DRUG INEFFECTIVE [None]
  - ECCHYMOSIS [None]
  - EPISTAXIS [None]
  - GASTROINTESTINAL HAEMORRHAGE [None]
  - HAEMATOMA [None]
  - HAEMORRHOIDS [None]
  - HERPETIC STOMATITIS [None]
  - IDIOPATHIC THROMBOCYTOPENIC PURPURA [None]
  - INFECTION [None]
  - MUCOSAL HAEMORRHAGE [None]
  - NIGHT SWEATS [None]
